FAERS Safety Report 9355249 (Version 2)
Quarter: 2013Q2

REPORT INFORMATION
  Report Type: Spontaneous
  Country: GB (occurrence: GB)
  Receive Date: 20130619
  Receipt Date: 20130627
  Transmission Date: 20140414
  Serious: Yes (Life-Threatening, Hospitalization)
  Sender: FDA-Public Use
  Company Number: GB-ROCHE-1236670

PATIENT
  Age: 51 Year
  Sex: Female
  Weight: 45 kg

DRUGS (4)
  1. AVASTIN [Suspect]
     Indication: OVARIAN EPITHELIAL CANCER
     Route: 042
     Dates: start: 20130219, end: 20130515
  2. CISPLATIN [Concomitant]
  3. GEMCITABINE [Concomitant]
     Indication: OVARIAN EPITHELIAL CANCER
     Route: 042
     Dates: start: 20130219, end: 20130515
  4. CARBOPLATIN [Concomitant]
     Indication: OVARIAN EPITHELIAL CANCER
     Route: 042
     Dates: start: 20130219, end: 20130515

REACTIONS (3)
  - Respiratory arrest [Not Recovered/Not Resolved]
  - Convulsion [Not Recovered/Not Resolved]
  - Leukoencephalopathy [Not Recovered/Not Resolved]
